FAERS Safety Report 12059888 (Version 4)
Quarter: 2016Q2

REPORT INFORMATION
  Report Type: Spontaneous
  Country: JP (occurrence: JP)
  Receive Date: 20160210
  Receipt Date: 20160427
  Transmission Date: 20160815
  Serious: Yes (Death)
  Sender: FDA-Public Use
  Company Number: JP-SA-2016SA021385

PATIENT
  Age: 68 Year
  Sex: Male
  Weight: 66 kg

DRUGS (10)
  1. PREDNISOLONE. [Concomitant]
     Active Substance: PREDNISOLONE
     Route: 048
     Dates: start: 20151014, end: 20160325
  2. ARTIST [Concomitant]
     Active Substance: CARVEDILOL
     Indication: HYPERTENSION
     Route: 048
     Dates: start: 2010, end: 20160325
  3. DEXART [Concomitant]
     Active Substance: DEXAMETHASONE SODIUM PHOSPHATE
     Indication: PREMEDICATION
     Dosage: EVERY 4 WEEKS
     Dates: start: 20151014, end: 20160106
  4. POLARAMINE [Concomitant]
     Active Substance: DEXCHLORPHENIRAMINE MALEATE
     Indication: PREMEDICATION
     Dosage: EVERY 4 WEEKS
     Dates: start: 20151014, end: 20160106
  5. FAMOTIDINE. [Concomitant]
     Active Substance: FAMOTIDINE
     Indication: PROPHYLAXIS AGAINST GASTROINTESTINAL ULCER
     Route: 048
     Dates: start: 20151015, end: 20160325
  6. G-LASTA [Concomitant]
     Active Substance: PEGFILGRASTIM
     Indication: PROPHYLAXIS
     Dosage: EVERY FOUR WEEKS
     Route: 058
     Dates: start: 20151015, end: 20160108
  7. FAMOTIDINE. [Concomitant]
     Active Substance: FAMOTIDINE
     Indication: PREMEDICATION
     Dosage: EVERY 4 WEEKS
     Dates: start: 20151014, end: 20160106
  8. JEVTANA [Suspect]
     Active Substance: CABAZITAXEL
     Indication: PROSTATE CANCER
     Dosage: EVERY 4 WEEKS.
     Route: 042
     Dates: start: 20151014, end: 20160106
  9. OLMETEC [Concomitant]
     Active Substance: OLMESARTAN MEDOXOMIL
     Indication: HYPERTENSION
     Route: 048
     Dates: start: 2010, end: 20160325
  10. ZOLADEX LA [Concomitant]
     Active Substance: GOSERELIN ACETATE
     Dates: start: 20101021, end: 20160316

REACTIONS (2)
  - Cardiovascular disorder [Fatal]
  - Vascular insufficiency [Recovering/Resolving]

NARRATIVE: CASE EVENT DATE: 20160113
